FAERS Safety Report 9760882 (Version 1)
Quarter: 2013Q4

REPORT INFORMATION
  Report Type: Spontaneous
  Country: US (occurrence: US)
  Receive Date: 20131216
  Receipt Date: 20131216
  Transmission Date: 20140711
  Serious: No
  Sender: FDA-Public Use
  Company Number: US-ENDO PHARMACEUTICALS INC.-SPIR20110011

PATIENT
  Sex: Female

DRUGS (2)
  1. SPIRONOLACTONE TABLETS 100MG [Suspect]
     Indication: ANDROGENETIC ALOPECIA
     Route: 048
     Dates: start: 200907
  2. NUVARING [Concomitant]

REACTIONS (2)
  - Drug ineffective [Unknown]
  - Product quality issue [Unknown]
